FAERS Safety Report 16214692 (Version 1)
Quarter: 2019Q2

REPORT INFORMATION
  Report Type: Report from Study
  Country: BR (occurrence: BR)
  Receive Date: 20190418
  Receipt Date: 20190418
  Transmission Date: 20190711
  Serious: Yes (Other)
  Sender: FDA-Public Use
  Company Number: BR-BIOGEN-2019BI00725931

PATIENT
  Sex: Female

DRUGS (1)
  1. AVONEX [Suspect]
     Active Substance: INTERFERON BETA-1A
     Indication: MULTIPLE SCLEROSIS
     Route: 030
     Dates: start: 200403

REACTIONS (7)
  - Injection site mass [Not Recovered/Not Resolved]
  - Vth nerve injury [Unknown]
  - Product administered at inappropriate site [Recovered/Resolved]
  - Hypermetropia [Not Recovered/Not Resolved]
  - Eye pain [Not Recovered/Not Resolved]
  - Peripheral vascular disorder [Not Recovered/Not Resolved]
  - Meningioma benign [Not Recovered/Not Resolved]

NARRATIVE: CASE EVENT DATE: 2018
